FAERS Safety Report 7601524-6 (Version None)
Quarter: 2011Q3

REPORT INFORMATION
  Report Type: 
  Country: None (occurrence: None)
  Receive Date: 20110711
  Receipt Date: 20110627
  Transmission Date: 20111222
  Serious: Yes (Other)
  Sender: FDA-Public Use
  Company Number: PHHY2010DE82011

PATIENT
  Sex: Male
  Weight: 98 kg

DRUGS (1)
  1. GLEEVEC [Suspect]
     Indication: GASTROINTESTINAL STROMAL TUMOUR
     Dosage: 400 MG, QD
     Route: 048
     Dates: start: 20091201, end: 20100901

REACTIONS (3)
  - BRONCHIAL OEDEMA [None]
  - BRONCHIAL DISORDER [None]
  - FORCED EXPIRATORY VOLUME ABNORMAL [None]
